FAERS Safety Report 12416229 (Version 2)
Quarter: 2016Q2

REPORT INFORMATION
  Report Type: Spontaneous
  Country: US (occurrence: US)
  Receive Date: 20160530
  Receipt Date: 20160610
  Transmission Date: 20160815
  Serious: Yes (Other)
  Sender: FDA-Public Use
  Company Number: US-AMGEN-USASP2016066099

PATIENT
  Age: 70 Year
  Sex: Female

DRUGS (1)
  1. PROLIA [Suspect]
     Active Substance: DENOSUMAB
     Indication: OSTEOPOROSIS POSTMENOPAUSAL
     Dosage: UNK
     Route: 065
     Dates: start: 201507

REACTIONS (13)
  - Gastrointestinal disorder [Recovering/Resolving]
  - Skin discolouration [Unknown]
  - Drug intolerance [Unknown]
  - Appendicitis perforated [Recovering/Resolving]
  - Flatulence [Unknown]
  - Arthritis [Unknown]
  - Colon neoplasm [Unknown]
  - Oesophagitis [Unknown]
  - Feeling abnormal [Unknown]
  - Blister [Unknown]
  - Blood parathyroid hormone abnormal [Unknown]
  - Abdominal pain upper [Unknown]
  - Eructation [Unknown]

NARRATIVE: CASE EVENT DATE: 2016
